FAERS Safety Report 7318317-X (Version None)
Quarter: 2011Q1

REPORT INFORMATION
  Report Type: 
  Country: None (occurrence: None)
  Receive Date: 20110228
  Receipt Date: 20110218
  Transmission Date: 20110831
  Serious: No
  Sender: FDA-Public Use
  Company Number: US-BIOGENIDEC-2011BI006691

PATIENT
  Age: 62 Year
  Sex: Female

DRUGS (2)
  1. AVONEX [Suspect]
     Indication: MULTIPLE SCLEROSIS
     Route: 030
     Dates: start: 20110121
  2. KLONOPIN [Concomitant]
     Indication: MUSCLE SPASMS
     Dates: start: 20060101

REACTIONS (5)
  - PNEUMONIA [None]
  - TREMOR [None]
  - INFLUENZA LIKE ILLNESS [None]
  - HYPERVENTILATION [None]
  - MUSCLE SPASMS [None]
